FAERS Safety Report 9429318 (Version 1)
Quarter: 2013Q3

REPORT INFORMATION
  Report Type: Report from Study
  Country: US (occurrence: US)
  Receive Date: 20130730
  Receipt Date: 20130730
  Transmission Date: 20140515
  Serious: No
  Sender: FDA-Public Use
  Company Number: US-ABBOTT-13P-163-1053561-00

PATIENT
  Age: 50 Year
  Sex: Male

DRUGS (4)
  1. NIASPAN (COATED) [Suspect]
     Indication: HIGH DENSITY LIPOPROTEIN DECREASED
     Route: 048
  2. NIASPAN (COATED) [Suspect]
     Indication: BLOOD TRIGLYCERIDES INCREASED
  3. FENOFIBRATE [Concomitant]
     Indication: PRODUCT USED FOR UNKNOWN INDICATION
     Route: 048
  4. OTC MEDICATION POSSIBLY ALEVE [Concomitant]
     Indication: PAIN

REACTIONS (10)
  - Drug dose omission [Unknown]
  - Flushing [Recovered/Resolved]
  - Feeling hot [Recovered/Resolved]
  - Feeling hot [Recovered/Resolved]
  - Hyperhidrosis [Recovered/Resolved]
  - Asthenia [Recovered/Resolved]
  - Loss of consciousness [Recovered/Resolved]
  - Flushing [Recovered/Resolved]
  - Pain in extremity [Unknown]
  - Epicondylitis [Unknown]
